FAERS Safety Report 25238819 (Version 2)
Quarter: 2025Q2

REPORT INFORMATION
  Report Type: Spontaneous
  Country: RU (occurrence: RU)
  Receive Date: 20250425
  Receipt Date: 20250514
  Transmission Date: 20250717
  Serious: Yes (Other)
  Sender: DAIICHI
  Company Number: RU-AstraZeneca-CH-00851896A

PATIENT
  Sex: Female
  Weight: 92 kg

DRUGS (1)
  1. TRASTUZUMAB DERUXTECAN [Suspect]
     Active Substance: TRASTUZUMAB DERUXTECAN
     Indication: Breast cancer metastatic
     Dosage: 5.4 MG/KG, ONCE EVERY 3 WK
     Route: 042

REACTIONS (4)
  - Swelling face [Unknown]
  - Oedema peripheral [Unknown]
  - Cushing^s syndrome [Unknown]
  - Metastases to central nervous system [Unknown]
